FAERS Safety Report 6992168-8 (Version None)
Quarter: 2010Q3

REPORT INFORMATION
  Report Type: 
  Country: None (occurrence: None)
  Receive Date: 20100917
  Receipt Date: 20100618
  Transmission Date: 20110219
  Serious: No
  Sender: FDA-Public Use
  Company Number: A0863607A

PATIENT
  Age: 16 Year
  Sex: Female
  Weight: 51.8 kg

DRUGS (7)
  1. PROMACTA [Suspect]
     Indication: IDIOPATHIC THROMBOCYTOPENIC PURPURA
     Route: 048
  2. UNKNOWN [Concomitant]
  3. ATENOLOL [Concomitant]
     Dosage: 12.5MG TWICE PER DAY
  4. PENICILLIN V POTASSIUM [Concomitant]
     Dosage: 250MG TWICE PER DAY
  5. PREVACID [Concomitant]
     Dosage: 30MG IN THE MORNING
  6. BACTRIM [Concomitant]
     Dosage: 180MG TWICE PER DAY
  7. DANAZOL [Concomitant]

REACTIONS (1)
  - RASH [None]
